FAERS Safety Report 16586188 (Version 1)
Quarter: 2019Q3

REPORT INFORMATION
  Report Type: Spontaneous
  Country: CA (occurrence: CA)
  Receive Date: 20190717
  Receipt Date: 20190717
  Transmission Date: 20191004
  Serious: Yes (Life-Threatening)
  Sender: FDA-Public Use
  Company Number: CA-MYLANLABS-2019M1044031

PATIENT
  Sex: Female

DRUGS (4)
  1. DULOXETINE. [Concomitant]
     Active Substance: DULOXETINE
     Indication: DEPRESSION
     Dosage: 30 MILLIGRAM, QD
     Route: 048
     Dates: start: 20170511
  2. CETRIZINE [Concomitant]
     Active Substance: CETIRIZINE HYDROCHLORIDE
     Indication: HYPERSENSITIVITY
     Dosage: 20 MILLIGRAM, QD
     Route: 048
     Dates: start: 20170410
  3. EPIPEN [Suspect]
     Active Substance: EPINEPHRINE
     Indication: HYPERSENSITIVITY
     Dosage: UNK, PRN
     Route: 030
  4. EPIPEN [Suspect]
     Active Substance: EPINEPHRINE
     Indication: ANAPHYLACTIC REACTION

REACTIONS (1)
  - Device failure [Recovered/Resolved]
